FAERS Safety Report 6059161-3 (Version None)
Quarter: 2009Q1

REPORT INFORMATION
  Report Type: 
  Country: None (occurrence: None)
  Receive Date: 20090130
  Receipt Date: 20090120
  Transmission Date: 20090719
  Serious: Yes (Other)
  Sender: FDA-Public Use
  Company Number: CN-PFIZER INC-2009160317

PATIENT

DRUGS (4)
  1. SULPERAZON [Suspect]
     Indication: INFECTION
     Route: 042
  2. ENOXACIN [Concomitant]
  3. CEFALOTIN [Concomitant]
  4. METRONIDAZOLE BENZOATE [Concomitant]

REACTIONS (1)
  - PLATELET COUNT DECREASED [None]
